FAERS Safety Report 4855499-3 (Version None)
Quarter: 2005Q4

REPORT INFORMATION
  Report Type: 
  Country: None (occurrence: None)
  Receive Date: 20051214
  Receipt Date: 20051128
  Transmission Date: 20060501
  Serious: Yes (Other)
  Sender: FDA-Public Use
  Company Number: 2005153852

PATIENT
  Age: 75 Year
  Sex: Male
  Weight: 79.3795 kg

DRUGS (4)
  1. XALATAN [Suspect]
     Indication: GLAUCOMA
     Dosage: 1 DROP (1 DROP, QD INTERVAL:  EVERY DAY), OPHTHALMIC
     Route: 047
     Dates: start: 20020101
  2. BETIMOL (TIMOLOL) [Suspect]
     Indication: GLAUCOMA
     Dosage: 2 DROP (1 DROP, BID INTERVAL:  EVERY DAY), OPHTHALMIC
     Route: 047
     Dates: start: 20000101
  3. ALL OTHER THERAPEUTIC PRODUCTS (ALL OTHER THERAPEUTIC PRODUCTS) [Suspect]
     Indication: ILL-DEFINED DISORDER
     Dosage: OPHTHALMIC
  4. NUTRITIONAL SUPPLEMENT (GENERAL NUTRIENTS) [Concomitant]

REACTIONS (5)
  - ACTIVITIES OF DAILY LIVING IMPAIRED [None]
  - BALANCE DISORDER [None]
  - CATARACT [None]
  - CONDITION AGGRAVATED [None]
  - POST PROCEDURAL DIZZINESS [None]
